FAERS Safety Report 4998723-9 (Version None)
Quarter: 2006Q2

REPORT INFORMATION
  Report Type: 
  Country: None (occurrence: None)
  Receive Date: 20060508
  Receipt Date: 20060425
  Transmission Date: 20061013
  Serious: Yes (Death)
  Sender: FDA-Public Use
  Company Number: CLOF-10224

PATIENT
  Age: 11 Year
  Sex: Male

DRUGS (3)
  1. CLOLAR [Suspect]
     Indication: ACUTE LYMPHOCYTIC LEUKAEMIA
     Dosage: 40 MG/M2 QD X 5 IV
     Route: 042
     Dates: start: 20060330, end: 20060403
  2. DECADRON SRC [Concomitant]
  3. TARGOCID [Concomitant]

REACTIONS (4)
  - BONE MARROW FAILURE [None]
  - MULTI-ORGAN FAILURE [None]
  - REFRACTORY ANAEMIA [None]
  - SEPTIC SHOCK [None]
